FAERS Safety Report 4720015-3 (Version None)
Quarter: 2005Q3

REPORT INFORMATION
  Report Type: 
  Country: None (occurrence: None)
  Receive Date: 20050721
  Receipt Date: 20040317
  Transmission Date: 20060218
  Serious: No
  Sender: FDA-Public Use
  Company Number: US-GLAXOSMITHKLINE-A0503196A

PATIENT
  Age: 46 Year
  Sex: Female

DRUGS (2)
  1. IMITREX [Suspect]
     Indication: MIGRAINE
     Route: 048
     Dates: start: 20040301
  2. NONE [Concomitant]

REACTIONS (4)
  - HYPERSENSITIVITY [None]
  - NAUSEA [None]
  - OROPHARYNGEAL SWELLING [None]
  - SNEEZING [None]
